FAERS Safety Report 11867230 (Version 1)
Quarter: 2015Q4

REPORT INFORMATION
  Report Type: Spontaneous
  Country: US (occurrence: None)
  Receive Date: 20151223
  Receipt Date: 20151223
  Transmission Date: 20160305
  Serious: Yes (Hospitalization)
  Sender: FDA-Public Use
  Company Number: None

PATIENT
  Age: 61 Year
  Sex: Male
  Weight: 99.3 kg

DRUGS (3)
  1. WARFARIN [Concomitant]
     Active Substance: WARFARIN
     Route: 048
     Dates: start: 20130816, end: 20151120
  2. ENOXAPARIN [Suspect]
     Active Substance: ENOXAPARIN
     Indication: CARDIAC VENTRICULAR THROMBOSIS
     Route: 058
     Dates: start: 20151118, end: 20151120
  3. ENOXAPARIN [Suspect]
     Active Substance: ENOXAPARIN
     Indication: ATRIAL FIBRILLATION
     Route: 058
     Dates: start: 20151118, end: 20151120

REACTIONS (4)
  - Alcohol use [None]
  - Blood pressure systolic decreased [None]
  - Haemoglobin decreased [None]
  - Haematemesis [None]

NARRATIVE: CASE EVENT DATE: 20151120
